FAERS Safety Report 26028066 (Version 1)
Quarter: 2025Q4

REPORT INFORMATION
  Report Type: Spontaneous
  Country: GB (occurrence: GB)
  Receive Date: 20251111
  Receipt Date: 20251111
  Transmission Date: 20260118
  Serious: Yes (Other)
  Sender: INCYTE
  Company Number: GB-002147023-NVSC2025GB169751

PATIENT
  Age: 79 Year

DRUGS (1)
  1. RUXOLITINIB [Suspect]
     Active Substance: RUXOLITINIB
     Indication: Myelofibrosis
     Dosage: 15 MG, QD
     Route: 065

REACTIONS (2)
  - Platelet count decreased [Unknown]
  - Performance status decreased [Unknown]
